FAERS Safety Report 22937905 (Version 2)
Quarter: 2023Q4

REPORT INFORMATION
  Report Type: Spontaneous
  Country: US (occurrence: US)
  Receive Date: 20230913
  Receipt Date: 20231011
  Transmission Date: 20240109
  Serious: No
  Sender: FDA-Public Use
  Company Number: US-Vifor (International) Inc.-VIT-2023-06723

PATIENT
  Age: 87 Year
  Sex: Male

DRUGS (11)
  1. VELTASSA [Suspect]
     Active Substance: PATIROMER
     Indication: Chronic kidney disease
     Dosage: DISSOLVE CONTENTS OF 1 PACKET INTO ONE-THIRD CUP OF WATER AND DRINK FULL AMOUNT ONCE DAILY
     Route: 048
     Dates: start: 20170809
  2. ALLOPURINOL [Concomitant]
     Active Substance: ALLOPURINOL
  3. ASPIRIN [Concomitant]
     Active Substance: ASPIRIN
  4. ATORVASTATIN [Concomitant]
     Active Substance: ATORVASTATIN
  5. BICALUTAMIDE [Concomitant]
     Active Substance: BICALUTAMIDE
  6. DIGOXIN [Concomitant]
     Active Substance: DIGOXIN
  7. ELIQUIS [Concomitant]
     Active Substance: APIXABAN
  8. LISINOPRIL [Concomitant]
     Active Substance: LISINOPRIL
  9. MULTAQ [Concomitant]
     Active Substance: DRONEDARONE
  10. OMEGA-3 ACIDS [Concomitant]
     Active Substance: OMEGA-3 FATTY ACIDS
  11. SODIUM BICAR [Concomitant]

REACTIONS (2)
  - Product dose omission issue [Unknown]
  - No adverse event [Unknown]

NARRATIVE: CASE EVENT DATE: 20230905
